FAERS Safety Report 21350142 (Version 2)
Quarter: 2022Q3

REPORT INFORMATION
  Report Type: Spontaneous
  Country: JP (occurrence: JP)
  Receive Date: 20220919
  Receipt Date: 20220921
  Transmission Date: 20221026
  Serious: No
  Sender: FDA-Public Use
  Company Number: JP-PFIZER INC-PV202200064206

PATIENT
  Age: 9 Decade
  Sex: Female

DRUGS (1)
  1. PAXLOVID [Suspect]
     Active Substance: NIRMATRELVIR\RITONAVIR
     Indication: COVID-19 treatment
     Dosage: UNK
     Route: 048

REACTIONS (3)
  - Urticaria [Not Recovered/Not Resolved]
  - Product use complaint [Unknown]
  - Wrong technique in product usage process [Unknown]
